FAERS Safety Report 21465295 (Version 1)
Quarter: 2022Q4

REPORT INFORMATION
  Report Type: Spontaneous
  Country: US (occurrence: None)
  Receive Date: 20221014
  Receipt Date: 20221014
  Transmission Date: 20230112
  Serious: Yes (Hospitalization)
  Sender: FDA-Public Use
  Company Number: None

PATIENT
  Sex: Female

DRUGS (1)
  1. SILDENAFIL CITRATE [Suspect]
     Active Substance: SILDENAFIL CITRATE
     Indication: Pulmonary arterial hypertension
     Dosage: 40 MG THREE TIMES DAILY PO?
     Route: 048
     Dates: start: 20200818

REACTIONS (4)
  - Pulmonary arterial hypertension [None]
  - Condition aggravated [None]
  - Loss of consciousness [None]
  - Product dose omission issue [None]
